FAERS Safety Report 5557524-3 (Version None)
Quarter: 2007Q4

REPORT INFORMATION
  Report Type: 
  Country: None (occurrence: None)
  Receive Date: 20071214
  Receipt Date: 20071205
  Transmission Date: 20080405
  Serious: Yes (Life-Threatening, Hospitalization)
  Sender: FDA-Public Use
  Company Number: A0623429A

PATIENT
  Age: 47 Year
  Sex: Male
  Weight: 90 kg

DRUGS (9)
  1. ADVAIR DISKUS 100/50 [Suspect]
     Indication: ASTHMA
     Dosage: 1PUFF TWICE PER DAY
     Route: 055
     Dates: start: 20030626, end: 20060110
  2. SEREVENT [Suspect]
     Indication: ASTHMA
     Dosage: 2PUFF TWICE PER DAY
     Route: 055
     Dates: start: 19971111, end: 19991207
  3. PRIMATENE MIST [Concomitant]
  4. PROVENTIL [Concomitant]
  5. CLARITIN-D [Concomitant]
  6. FLOVENT [Concomitant]
     Indication: ASTHMA
     Dosage: 2PUFF TWICE PER DAY
     Route: 055
     Dates: end: 20030626
  7. SINGULAIR [Concomitant]
  8. NASACORT [Concomitant]
  9. PULMICORT [Concomitant]
     Dates: start: 20060110

REACTIONS (17)
  - ABDOMINAL DISTENSION [None]
  - ABDOMINAL TENDERNESS [None]
  - ASTHMA [None]
  - CYANOSIS [None]
  - DISABILITY [None]
  - DYSPNOEA [None]
  - GASTRIC PERFORATION [None]
  - HYPERKALAEMIA [None]
  - LOSS OF CONSCIOUSNESS [None]
  - LUNG HYPERINFLATION [None]
  - PYREXIA [None]
  - RESPIRATORY ACIDOSIS [None]
  - RESPIRATORY ARREST [None]
  - RESPIRATORY FAILURE [None]
  - STATUS ASTHMATICUS [None]
  - TACHYCARDIA [None]
  - VOMITING [None]
